FAERS Safety Report 6634188-9 (Version None)
Quarter: 2010Q1

REPORT INFORMATION
  Report Type: 
  Country: None (occurrence: None)
  Receive Date: 20100309
  Receipt Date: 20100226
  Transmission Date: 20100710
  Serious: Yes (Other)
  Sender: FDA-Public Use
  Company Number: 2010EU000781

PATIENT
  Age: 55 Year
  Sex: Male
  Weight: 62 kg

DRUGS (5)
  1. TACROLIMUS [Suspect]
     Indication: IMMUNOSUPPRESSION
     Dosage: 11 MG, UID/QD, ORAL
     Route: 048
     Dates: end: 20091209
  2. KALETRA [Suspect]
     Indication: HIV INFECTION
     Dosage: 400 DF, BID, ORAL
     Route: 048
     Dates: start: 20091204
  3. EPIVIR [Concomitant]
  4. VIRAMUNE [Concomitant]
  5. RETROVIR [Concomitant]

REACTIONS (5)
  - DIPLOPIA [None]
  - IMMUNOSUPPRESSANT DRUG LEVEL INCREASED [None]
  - MALAISE [None]
  - NAUSEA [None]
  - THERAPEUTIC AGENT TOXICITY [None]
